FAERS Safety Report 6078467-5 (Version None)
Quarter: 2009Q1

REPORT INFORMATION
  Report Type: 
  Country: None (occurrence: None)
  Receive Date: 20090212
  Receipt Date: 20090212
  Transmission Date: 20090719
  Serious: Yes (Other)
  Sender: FDA-Public Use
  Company Number: None

PATIENT
  Age: 49 Year
  Sex: Male
  Weight: 67.1324 kg

DRUGS (2)
  1. BONIVA [Suspect]
     Indication: OSTEOPOROSIS
     Dosage: 150MG MONTHLY PO
     Route: 048
     Dates: start: 20070701, end: 20080101
  2. BONIVA [Suspect]
     Indication: OSTEOPOROSIS
     Dosage: 150MG MONTHLY PO
     Route: 048
     Dates: start: 20081115, end: 20081215

REACTIONS (1)
  - ARTHRALGIA [None]
